FAERS Safety Report 7090573-5 (Version None)
Quarter: 2010Q4

REPORT INFORMATION
  Report Type: 
  Country: None (occurrence: None)
  Receive Date: 20101012
  Receipt Date: 20100108
  Transmission Date: 20110411
  Serious: Yes (Other)
  Sender: FDA-Public Use
  Company Number: 1000010700

PATIENT
  Age: 52 Year
  Sex: Female

DRUGS (1)
  1. LEXAPRO [Suspect]
     Indication: DEPRESSION

REACTIONS (1)
  - ELECTROCARDIOGRAM QT PROLONGED [None]
